FAERS Safety Report 13791658 (Version 5)
Quarter: 2017Q3

REPORT INFORMATION
  Report Type: Spontaneous
  Country: CA (occurrence: CA)
  Receive Date: 20170725
  Receipt Date: 20170822
  Transmission Date: 20171127
  Serious: Yes (Other)
  Sender: FDA-Public Use
  Company Number: CA-PFIZER INC-2017315479

PATIENT
  Age: 36 Year
  Sex: Female

DRUGS (9)
  1. GLUCOSAMINE + CHONDROITIN /01430901/ [Concomitant]
     Dosage: 1 DF, 2X/DAY
     Route: 065
     Dates: start: 201704
  2. DESLORATADINE. [Concomitant]
     Active Substance: DESLORATADINE
     Indication: HYPERSENSITIVITY
     Dosage: 5 MG, DAILY
     Route: 065
     Dates: start: 2007
  3. BUPROPION. [Concomitant]
     Active Substance: BUPROPION
     Dosage: 300 MG, DAILY
     Route: 065
     Dates: start: 201704
  4. PREDNISONE. [Concomitant]
     Active Substance: PREDNISONE
     Dosage: 70 MG, DAILY (TAPER 10MG WEEKLY)
     Route: 065
     Dates: start: 201703
  5. METHOTREXATE SODIUM. [Suspect]
     Active Substance: METHOTREXATE SODIUM
     Dosage: 15 MG, WEEKLY
     Dates: start: 20170717
  6. FOLIC ACID. [Concomitant]
     Active Substance: FOLIC ACID
     Dosage: 5 MG DAILY EXCEPT METHOTREXATE DAYS
     Route: 065
     Dates: start: 20170717
  7. VITAMIN B12 [Concomitant]
     Active Substance: CYANOCOBALAMIN
     Dosage: 2000 MG, DAILY
     Route: 065
     Dates: start: 2013
  8. VITAMIN D /00107901/ [Concomitant]
     Active Substance: ERGOCALCIFEROL
     Dosage: 4000 IU, DAILY
     Route: 065
     Dates: start: 2016
  9. PREVACID [Concomitant]
     Active Substance: LANSOPRAZOLE
     Dosage: 30 MG, EVERY OTHER DAY
     Route: 065
     Dates: start: 2013

REACTIONS (7)
  - Diplopia [Unknown]
  - Cellulitis [Not Recovered/Not Resolved]
  - Urinary tract infection [Not Recovered/Not Resolved]
  - Haematochezia [Unknown]
  - Discomfort [Unknown]
  - Feeling abnormal [Unknown]
  - Frequent bowel movements [Unknown]

NARRATIVE: CASE EVENT DATE: 20170722
